FAERS Safety Report 4524157-7 (Version None)
Quarter: 2004Q4

REPORT INFORMATION
  Report Type: 
  Country: None (occurrence: None)
  Receive Date: 20041119
  Receipt Date: 20040908
  Transmission Date: 20050328
  Serious: No
  Sender: FDA-Public Use
  Company Number: 208911

PATIENT
  Age: 54 Year
  Sex: Female

DRUGS (4)
  1. RAPTIVA [Suspect]
     Indication: PSORIASIS
     Dosage: 0.6 ML, SINGLE, SUBCUTANEOUS
     Route: 058
     Dates: start: 20040901
  2. VICOPROFEN [Concomitant]
  3. STEROIDS NOS (STEROID NOS) [Concomitant]
  4. UNSPECIFIED MEDICATION (GENERIC COMPONENT(S) NOT KNOWN) [Concomitant]

REACTIONS (4)
  - BODY TEMPERATURE INCREASED [None]
  - MIGRAINE [None]
  - PSORIASIS [None]
  - RETCHING [None]
